FAERS Safety Report 21576718 (Version 2)
Quarter: 2022Q4

REPORT INFORMATION
  Report Type: Spontaneous
  Country: GB (occurrence: GB)
  Receive Date: 20221110
  Receipt Date: 20221212
  Transmission Date: 20230113
  Serious: Yes (Other)
  Sender: FDA-Public Use
  Company Number: GB-CELLTRION INC.-2022GB014729

PATIENT
  Age: 45 Year
  Sex: Female
  Weight: 83 kg

DRUGS (391)
  1. SYNVISC [Suspect]
     Active Substance: HYLAN G-F 20
     Indication: Product used for unknown indication
     Dosage: UNK
  2. SYNVISC [Suspect]
     Active Substance: HYLAN G-F 20
     Dosage: 600 MG, Q3W (685.7143 MG)
     Dates: start: 20150825, end: 20151117
  3. SYNVISC [Suspect]
     Active Substance: HYLAN G-F 20
     Dosage: UNK
     Dates: start: 20160308, end: 20160308
  4. SYNVISC [Suspect]
     Active Substance: HYLAN G-F 20
     Dosage: 600 MG, Q3W (CUMULATIVE DOSE: 9342.857 MG)
     Dates: start: 20160623
  5. DOCETAXEL [Suspect]
     Active Substance: DOCETAXEL
     Indication: Breast cancer metastatic
     Dosage: 120 MG, EVERY 3 WEEKS (CUMULATIVE DOSE: 74.28571 MG)
     Route: 042
     Dates: start: 20150804, end: 20151117
  6. DOCETAXEL [Suspect]
     Active Substance: DOCETAXEL
     Dosage: 120 MG, EVERY 3 WEEKS
     Dates: start: 20150804, end: 20151117
  7. DOCETAXEL [Suspect]
     Active Substance: DOCETAXEL
     Dosage: 120 MILLIGRAM, Q3WK (CUMULATIVE DOSE: 74.28571 MG)
     Dates: start: 20150814, end: 20151117
  8. DOCETAXEL [Suspect]
     Active Substance: DOCETAXEL
     Dosage: 120 MILLIGRAM, Q3WK (CUMULATIVE DOSE: 6160 MG)
     Route: 042
     Dates: start: 20150804
  9. DOCETAXEL [Suspect]
     Active Substance: DOCETAXEL
     Dosage: 120 MILLIGRAM, Q3WK (CUMULATIVE DOSE:6137.143 MG)
     Route: 042
     Dates: start: 20150808, end: 20151117
  10. DOCETAXEL [Suspect]
     Active Substance: DOCETAXEL
     Dosage: 600 MG, Q3W  (CUMULATIVE DOSE:149.434 MG)
     Route: 042
     Dates: start: 20151217, end: 20160308
  11. DOCETAXEL [Suspect]
     Active Substance: DOCETAXEL
     Dosage: 120 MG, EVERY 3 WEEKS
     Dates: start: 20150804, end: 20151117
  12. DOCETAXEL [Suspect]
     Active Substance: DOCETAXEL
     Dosage: 120 MG, EVERY 3 WEEKS
     Dates: start: 20150804, end: 20151117
  13. DOCETAXEL [Suspect]
     Active Substance: DOCETAXEL
     Dosage: 120 MG, Q3W
     Route: 042
     Dates: start: 20150804, end: 20151117
  14. DOCETAXEL [Suspect]
     Active Substance: DOCETAXEL
     Dosage: 600 MG, Q3W  (CUMULATIVE DOSE:4713.095 MG)
     Dates: start: 20150217, end: 20160308
  15. DOCETAXEL [Suspect]
     Active Substance: DOCETAXEL
     Dosage: 120 MG, EVERY 3 WEEKS (CUMULATIVE DOSE: 74.28571 MG)
     Dates: start: 20150804, end: 20151117
  16. DOCETAXEL [Suspect]
     Active Substance: DOCETAXEL
     Dosage: 600 MG, Q3W  (CUMULATIVE DOSE:4713.095 MG)
     Dates: start: 20150217, end: 20160308
  17. DOCETAXEL [Suspect]
     Active Substance: DOCETAXEL
     Dosage: 120 MILLIGRAM, Q3WK (CUMULATIVE DOSE: 74.28571 MG)
     Route: 065
     Dates: start: 20150814, end: 20151117
  18. DOCETAXEL [Suspect]
     Active Substance: DOCETAXEL
     Dosage: 120 MILLIGRAM, Q3WK (CUMULATIVE DOSE: 74.28571 MG)
     Route: 065
     Dates: start: 20150814, end: 20151117
  19. DOCETAXEL [Suspect]
     Active Substance: DOCETAXEL
     Dosage: 120 MILLIGRAM, Q3WK (CUMULATIVE DOSE: 6102.857 MG)
     Route: 042
     Dates: start: 20150814, end: 20151117
  20. DOCETAXEL [Suspect]
     Active Substance: DOCETAXEL
     Dosage: 600 MG, Q3W  (CUMULATIVE DOSE:26941.666 MG)
     Route: 042
     Dates: start: 20150217, end: 20160308
  21. DOCETAXEL [Suspect]
     Active Substance: DOCETAXEL
     Dosage: 120 MG, EVERY 3 WEEKS (CUMULATIVE DOSE: 74.28571 MG)
     Route: 042
     Dates: start: 20150804, end: 20151117
  22. DOCETAXEL [Suspect]
     Active Substance: DOCETAXEL
     Dosage: 120 MILLIGRAM, Q3WK (CUMULATIVE DOSE: 74.28571 MG)
     Route: 065
     Dates: start: 20150814, end: 20151117
  23. DOCETAXEL [Suspect]
     Active Substance: DOCETAXEL
     Dosage: 120 MILLIGRAM, Q3WK (CUMULATIVE DOSE: 75 MG)
     Route: 042
     Dates: start: 20150814, end: 20151117
  24. DOCETAXEL [Suspect]
     Active Substance: DOCETAXEL
     Indication: Breast cancer metastatic
     Dosage: 600 MG 3 PER WEEK, ADDITIONAL INFORMATION ON DRUG (FREE TEXT): VORHYALURONIDASE ALFA
     Route: 042
  25. DOCETAXEL [Suspect]
     Active Substance: DOCETAXEL
     Dosage: 600 MG, Q3W
     Route: 042
     Dates: start: 20151217, end: 20160308
  26. DOCETAXEL [Suspect]
     Active Substance: DOCETAXEL
     Dosage: 600 MG EVERY 3 WEEKS/CUMULATIVE DOSE: 4713.095 MG
     Dates: start: 20151117, end: 20160308
  27. DOCETAXEL [Suspect]
     Active Substance: DOCETAXEL
     Dosage: 600 MG EVERY 3 WEEKS; ADDITIONAL INFORMATION ON DRUG (FREE TEXT): VORHYALURONIDASE ALFA
     Route: 042
     Dates: start: 20151217, end: 20160308
  28. DOCETAXEL [Suspect]
     Active Substance: DOCETAXEL
     Dosage: 600 MG EVERY 3 WEEKS/CUMULATIVE DOSE: 4713.095 MG
     Route: 065
     Dates: start: 20151117, end: 20160308
  29. DOCETAXEL [Suspect]
     Active Substance: DOCETAXEL
     Dosage: 120 MG, EVERY 3 WEEKS
     Route: 042
     Dates: start: 20150808, end: 20151117
  30. DOCETAXEL [Suspect]
     Active Substance: DOCETAXEL
     Dosage: 120 MG, EVERY 3 WEEKS (CUMULATIVE DOSE: 17.142857MG)
     Route: 042
     Dates: start: 20150804, end: 20151117
  31. DOCETAXEL [Suspect]
     Active Substance: DOCETAXEL
     Dosage: 600 MG EVERY 3 WEEKS/CUMULATIVE DOSE: 4713.095 MG
     Route: 065
     Dates: start: 20151117, end: 20160308
  32. DOCETAXEL [Suspect]
     Active Substance: DOCETAXEL
     Dosage: UNK, EVERY 3 WEEKS (120 MILLIGRAM, Q3WK)
     Route: 042
     Dates: start: 20150814, end: 20151117
  33. DOCETAXEL [Suspect]
     Active Substance: DOCETAXEL
     Dosage: 120 MG EVERY 3 WEEKS; CUMULATIVE DOSE TO FIRST REACTION: 17.142857 MG; ADDITIONAL INFORMATION ON DRU
     Route: 042
     Dates: start: 20150804, end: 20151117
  34. DOCETAXEL [Suspect]
     Active Substance: DOCETAXEL
     Dosage: 600 MG 3 PER WEEK, ADDITIONAL INFORMATION ON DRUG (FREE TEXT): VORHYALURONIDASE ALFA
     Route: 042
  35. DOCETAXEL [Suspect]
     Active Substance: DOCETAXEL
     Dosage: 600 MG EVERY 3 WEEKS
     Route: 042
     Dates: start: 20151117, end: 20160308
  36. DOCETAXEL [Suspect]
     Active Substance: DOCETAXEL
     Dosage: 120 MILLIGRAM, Q3WK, ADDITIONAL INFORMATION ON DRUG (FREE TEXT): VORHYALURONIDASE ALFA
     Route: 042
  37. DOCETAXEL [Suspect]
     Active Substance: DOCETAXEL
     Dosage: 120 MG EVERY 3 WEEKS; CUMULATIVE DOSE TO FIRST REACTION: 40.0 MG;  ADDITIONAL INFORMATION ON DRUG (F
     Route: 042
     Dates: start: 20150808, end: 20151117
  38. DOCETAXEL [Suspect]
     Active Substance: DOCETAXEL
     Dosage: 120 MILLIGRAM, Q3WK; CUMULATIVE DOSE TO FIRST REACTION: 74.28571 MG; ADDITIONAL INFORMATION ON DRUG
     Route: 042
     Dates: start: 20150814, end: 20151117
  39. EXEMESTANE [Suspect]
     Active Substance: EXEMESTANE
     Indication: Breast cancer metastatic
     Dosage: UNK
     Route: 048
  40. EXEMESTANE [Suspect]
     Active Substance: EXEMESTANE
     Indication: Metastases to bone
     Dosage: 25 MG, QD (EVERY DAY)
     Route: 048
     Dates: start: 20150518
  41. EXEMESTANE [Suspect]
     Active Substance: EXEMESTANE
     Dosage: 25 MG, DAILY
     Route: 048
  42. EXEMESTANE [Suspect]
     Active Substance: EXEMESTANE
     Dosage: 25 MG, QD (CUMULATIVE DOSE: 1875.0 MG)
     Route: 048
     Dates: start: 20150518
  43. EXEMESTANE [Suspect]
     Active Substance: EXEMESTANE
     Dosage: 600 MILLIGRAM, Q3WK
     Dates: start: 20160723
  44. EXEMESTANE [Suspect]
     Active Substance: EXEMESTANE
     Dosage: 600 MILLIGRAM, Q3WK
     Dates: start: 20160723
  45. EXEMESTANE [Suspect]
     Active Substance: EXEMESTANE
     Dosage: 25 MG, EVERY 1 DAY
     Route: 048
  46. EXEMESTANE [Suspect]
     Active Substance: EXEMESTANE
     Dosage: 25 MG, EVERY 1 DAY
     Route: 048
  47. EXEMESTANE [Suspect]
     Active Substance: EXEMESTANE
     Dosage: UNK
  48. EXEMESTANE [Suspect]
     Active Substance: EXEMESTANE
     Dosage: 25 MG, EVERY 1 DAY; CUMULATIVE DOSE TO FIRST REACTION: 1875.0 MG
     Route: 048
     Dates: start: 20150518
  49. EXEMESTANE [Suspect]
     Active Substance: EXEMESTANE
     Dosage: 25 MG, EVERY 1 DAY
     Route: 048
  50. EXEMESTANE [Suspect]
     Active Substance: EXEMESTANE
     Dosage: 600 MG, EVERY 3 WEEKS; CUMULATIVE DOSE TO FIRST REACTION: 31057.143 MG
     Dates: start: 20180723
  51. EXEMESTANE [Suspect]
     Active Substance: EXEMESTANE
     Dosage: UNK
  52. HYALURONIDASE [Suspect]
     Active Substance: HYALURONIDASE
     Dosage: (CUMULATIVE DOSE TO FIRST REACTION: 3000 MG); RHUPH20
     Route: 058
     Dates: start: 20160308
  53. HYALURONIDASE [Suspect]
     Active Substance: HYALURONIDASE
     Dosage: 600 MG, Q3W ADDITIONAL INFORMATION ON DRUG (FREE TEXT): RHUPH20
     Route: 058
     Dates: start: 20160623
  54. HYALURONIDASE [Suspect]
     Active Substance: HYALURONIDASE
     Dosage: 600 MILLIGRAM, 3 TIMES IN A WEEK, MAINTAINANCE DOSE (CUMULATIVE DOSE: 2057.1428 MG) ADDITIONAL INFOR
     Dates: start: 20150825, end: 20151117
  55. HYALURONIDASE [Suspect]
     Active Substance: HYALURONIDASE
     Dosage: 600 MILLIGRAM, Q3WK; CUMULATIVE DOSE TO FIRST REACTION: 3513.09523 MG
     Route: 058
     Dates: start: 20160723
  56. HYALURONIDASE [Suspect]
     Active Substance: HYALURONIDASE
     Dosage: UNK
     Route: 048
     Dates: start: 20160308
  57. HYALURONIDASE [Suspect]
     Active Substance: HYALURONIDASE
     Dosage: 600 MG
     Route: 048
     Dates: start: 20160308
  58. HYALURONIDASE [Suspect]
     Active Substance: HYALURONIDASE
     Dosage: 600 MILLIGRAM, 3 TIMES IN A WEEK, MAINTAINANCE DOSE (CUMULATIVE DOSE: 2057.1428 MG),
     Dates: start: 20150825, end: 20151117
  59. HYALURONIDASE [Suspect]
     Active Substance: HYALURONIDASE
     Dosage: 600 MG, 3 PER WEEK/CUMULATIVE DOSE: 10200.0 MG, ADDITIONAL INFORMATION ON DRUG:  VORHYALURONIDASE AL
     Route: 058
     Dates: start: 20160723
  60. HYALURONIDASE [Suspect]
     Active Substance: HYALURONIDASE
     Dosage: 600 MILLIGRAM Q3W
     Route: 058
     Dates: start: 20160723
  61. HYALURONIDASE [Suspect]
     Active Substance: HYALURONIDASE
     Dosage: (CUMULATIVE DOSE TO FIRST REACTION: 3000 MG); RHUPH20
     Route: 048
     Dates: start: 20160308
  62. HYALURONIDASE [Suspect]
     Active Substance: HYALURONIDASE
     Dosage: 600 MG, 3 PER WEEK/CUMULATIVE DOSE: 10200.0 MG, ADDITIONAL INFORMATION ON DRUG:  VORHYALURONIDASE AL
     Route: 058
     Dates: start: 20160723
  63. HYALURONIDASE [Suspect]
     Active Substance: HYALURONIDASE
     Dosage: 600 MG, 3 PER WEEK/CUMULATIVE DOSE: 10200.0 MG, ADDITIONAL INFORMATION ON DRUG:  VORHYALURONIDASE AL
     Route: 058
     Dates: start: 20160723
  64. HYALURONIDASE [Suspect]
     Active Substance: HYALURONIDASE
     Dosage: 600 MILLIGRAM, 3 TIMES IN A WEEK, MAINTAINANCE DOSE (CUMULATIVE DOSE: 2057.1428 MG) ADDITIONAL INFOR
     Dates: start: 20150825, end: 20151117
  65. HYALURONIDASE [Suspect]
     Active Substance: HYALURONIDASE
     Dosage: 600 MILLIGRAM, 3 TIMES IN A WEEK, MAINTAINANCE DOSE (CUMULATIVE DOSE: 2057.1428 MG) ADDITIONAL INFOR
     Dates: start: 20150825, end: 20151117
  66. HYALURONIDASE [Suspect]
     Active Substance: HYALURONIDASE
     Dosage: 600 MILLIGRAM Q3WKS (CUMULATIVE DOSE: 10200.0 MG)
     Route: 058
     Dates: start: 20160723
  67. HYALURONIDASE [Suspect]
     Active Substance: HYALURONIDASE
     Dosage: 600 MG, QW, 600 MILLIGRAM, 3 TIMES IN A WEEK, MAINTAINANCE DOSE, ADDITIONAL INFORMATION ON DRUG (FRE
     Route: 058
     Dates: start: 20150825, end: 20151117
  68. HYALURONIDASE [Suspect]
     Active Substance: HYALURONIDASE
     Dosage: UNK
  69. HYALURONIDASE [Suspect]
     Active Substance: HYALURONIDASE
     Indication: Metastases to bone
     Dosage: 50 MG, QD
     Dates: start: 20150518
  70. HYALURONIDASE [Suspect]
     Active Substance: HYALURONIDASE
     Dosage: 600 MILLIGRAM, Q3WK (VORHYALURONIDASE ALFA)(CUMULATIVE DOSE: 3513.09523MG)
     Route: 058
     Dates: start: 20160723
  71. HYALURONIDASE [Suspect]
     Active Substance: HYALURONIDASE
     Dosage: 600 MILLIGRAM, Q3W; CUMULATIVE DOSE TO FIRST REACTION: 3000 MG, SUBCUTANEOUS
     Route: 058
     Dates: start: 20160623
  72. HYALURONIDASE [Suspect]
     Active Substance: HYALURONIDASE
     Dosage: UNK, ORAL
     Route: 048
     Dates: start: 20160308
  73. HYALURONIDASE [Suspect]
     Active Substance: HYALURONIDASE
     Dosage: 600 MILLIGRAM, 3 TIMES IN A WEEK, MAINTAINANCE DOSE; CUMULATIVE DOSE TO FIRST REACTION: 3000 MG, SUB
     Route: 058
     Dates: start: 20150825, end: 20151117
  74. IBANDRONATE SODIUM [Suspect]
     Active Substance: IBANDRONATE SODIUM
     Indication: Metastases to bone
     Dosage: 50 MG, QD
     Route: 048
     Dates: start: 20150518
  75. IBANDRONIC ACID [Suspect]
     Active Substance: IBANDRONIC ACID
     Indication: Metastases to bone
     Dosage: 50 MG, QD
     Route: 048
     Dates: start: 20150518
  76. IBANDRONIC ACID [Suspect]
     Active Substance: IBANDRONIC ACID
     Indication: Breast cancer metastatic
     Dosage: 50 MG, QD
     Route: 048
     Dates: start: 20150518
  77. IBANDRONIC ACID [Suspect]
     Active Substance: IBANDRONIC ACID
     Dosage: 420 MG, EVERY 1 DAY; CUMULATIVE DOSE TO FIRST REACTION: 453180.0 MG
     Dates: start: 20180715
  78. IBANDRONIC ACID [Suspect]
     Active Substance: IBANDRONIC ACID
     Dosage: 50 MILLIGRAM EVERY DAY (CUMULATIVE DOSE TO FIRST REACTION: 3750.0 MG)
     Dates: start: 20150518
  79. IBANDRONIC ACID [Suspect]
     Active Substance: IBANDRONIC ACID
     Dosage: MAINTENANCE DOSE
     Dates: start: 20180715
  80. IBANDRONIC ACID [Suspect]
     Active Substance: IBANDRONIC ACID
     Dosage: MAINTENANCE DOSE
     Dates: start: 20160715
  81. IBANDRONIC ACID [Suspect]
     Active Substance: IBANDRONIC ACID
     Dosage: UNK
  82. TRASTUZUMAB [Suspect]
     Active Substance: TRASTUZUMAB
     Indication: Breast cancer metastatic
     Dosage: 1800 MG, 1/WEEK
     Dates: start: 20160623
  83. TRASTUZUMAB [Suspect]
     Active Substance: TRASTUZUMAB
     Dosage: 600 MG, Q3W/ 600 MILLIGRAM, 3 TIMES IN A WEEK, MAINTAINANCE DOSE
     Route: 042
     Dates: start: 20150825, end: 20151117
  84. TRASTUZUMAB [Suspect]
     Active Substance: TRASTUZUMAB
     Dosage: 1800 MG, 1/WEEK
     Dates: start: 20160623
  85. TRASTUZUMAB [Suspect]
     Active Substance: TRASTUZUMAB
     Dosage: 600 MG, Q3W
     Route: 042
     Dates: start: 20160623
  86. TRASTUZUMAB [Suspect]
     Active Substance: TRASTUZUMAB
     Dosage: 600 MG, Q3W LOADING DOSE , SUBCUTANEOUS
     Route: 042
     Dates: start: 20160308, end: 20160308
  87. TRASTUZUMAB [Suspect]
     Active Substance: TRASTUZUMAB
     Dosage: 600 MG, Q3W
     Route: 042
     Dates: start: 20160723, end: 20160723
  88. TRASTUZUMAB [Suspect]
     Active Substance: TRASTUZUMAB
     Dosage: 600 MG, QD, LOADING DOSE (CUMULATIVE DOSE: 82825.0 MG)
     Dates: start: 20151217, end: 20160308
  89. TRASTUZUMAB [Suspect]
     Active Substance: TRASTUZUMAB
     Dosage: 483 MG, QD LOADING DOSE, INTRAVENOUS
     Route: 042
     Dates: start: 20150803, end: 20150803
  90. TRASTUZUMAB [Suspect]
     Active Substance: TRASTUZUMAB
     Dosage: 600 MG, QD LOADING DOSE
     Route: 042
     Dates: start: 20151217, end: 20160308
  91. TRASTUZUMAB [Suspect]
     Active Substance: TRASTUZUMAB
     Dosage: 600 MG ONCE IN 3 WEEKS; ROUTE OF ADMINISTRATION (FREE TEXT): STOPPED
     Route: 042
     Dates: start: 20160308, end: 20160308
  92. TRASTUZUMAB [Suspect]
     Active Substance: TRASTUZUMAB
     Dosage: UNK
  93. TRASTUZUMAB [Suspect]
     Active Substance: TRASTUZUMAB
     Dosage: 483 MG, QD LOADING DOSE
     Route: 042
     Dates: start: 20150803, end: 20150803
  94. TRASTUZUMAB [Suspect]
     Active Substance: TRASTUZUMAB
     Dosage: 600 MG, 3 PER WEEK, ADDITIONAL INFORMATION ON DRUG (FREE TEXT): HERCEPTIN
     Route: 058
  95. TRASTUZUMAB [Suspect]
     Active Substance: TRASTUZUMAB
     Dosage: 600MG, EVERY 3 WEEKS (HERCEPTIN)
     Route: 058
     Dates: start: 20160723
  96. TRASTUZUMAB [Suspect]
     Active Substance: TRASTUZUMAB
     Dosage: 600MG, EVERY 3 WEEKS
     Dates: start: 20160308, end: 20160308
  97. TRASTUZUMAB [Suspect]
     Active Substance: TRASTUZUMAB
     Dosage: 600MG, EVERY 3 WEEKS (HERCEPTIN)
     Route: 042
     Dates: start: 20150825, end: 20151117
  98. TRASTUZUMAB [Suspect]
     Active Substance: TRASTUZUMAB
     Dosage: 600 MG Q3WKS (CUMULATIVE DOSE: 685.7143 MG)
     Route: 058
     Dates: start: 20150825, end: 20151117
  99. TRASTUZUMAB [Suspect]
     Active Substance: TRASTUZUMAB
     Dosage: 600MG, EVERY 3 WEEKS (CUMULATIVE DOSE: 10200.0 MG)
     Dates: start: 20160723
  100. TRASTUZUMAB [Suspect]
     Active Substance: TRASTUZUMAB
     Dosage: 600MG, EVERY 3 WEEKS, CUMULATIVE DOSE: 685.7143 MG
     Dates: start: 20150825, end: 20151117
  101. TRASTUZUMAB [Suspect]
     Active Substance: TRASTUZUMAB
     Dosage: 600MG, EVERY 3 WEEKS (HERCEPTIN)
     Route: 058
     Dates: start: 20160723
  102. TRASTUZUMAB [Suspect]
     Active Substance: TRASTUZUMAB
     Dosage: 600 MILLIGRAM Q3WKS (CUMULATIVE DOSE: 6286.905 MG)
     Route: 058
     Dates: start: 20160308, end: 20160308
  103. TRASTUZUMAB [Suspect]
     Active Substance: TRASTUZUMAB
     Dosage: 600MG, EVERY 3 WEEKS
     Dates: start: 20150825, end: 20151117
  104. TRASTUZUMAB [Suspect]
     Active Substance: TRASTUZUMAB
     Dosage: 600MG, EVERY 3 WEEKSLOADING DOSE (CUMULATIVE DOSE: 6286.905 MG)
     Route: 058
     Dates: start: 20160308, end: 20160308
  105. TRASTUZUMAB [Suspect]
     Active Substance: TRASTUZUMAB
     Dosage: 600MG, EVERY 3 WEEKS (CUMULATIVE DOSE: 10200.0 MG)
     Dates: start: 20160723
  106. TRASTUZUMAB [Suspect]
     Active Substance: TRASTUZUMAB
     Dosage: 600MG, EVERY 3 WEEKS (CUMULATIVE DOSE: 10200.0 MG)
     Dates: start: 20160723
  107. TRASTUZUMAB [Suspect]
     Active Substance: TRASTUZUMAB
     Dosage: 600MG, EVERY 3 WEEKS (HERCEPTIN)
     Route: 058
     Dates: start: 20160308, end: 20160308
  108. TRASTUZUMAB [Suspect]
     Active Substance: TRASTUZUMAB
     Dosage: 600MG, EVERY 3 WEEKS
     Dates: start: 20150825, end: 20151117
  109. TRASTUZUMAB [Suspect]
     Active Substance: TRASTUZUMAB
     Dosage: 600MG, EVERY 3 WEEKS (CUMULATIVE DOSE: 10200.0 MG)
     Dates: start: 20160723
  110. TRASTUZUMAB [Suspect]
     Active Substance: TRASTUZUMAB
     Dosage: 600 MILLIGRAM Q3WKS (CUMULATIVE DOSE: 9342.857 MG)
     Route: 058
  111. TRASTUZUMAB [Suspect]
     Active Substance: TRASTUZUMAB
     Dosage: 600 MG, 3 PER WEEK, ADDITIONAL INFORMATION ON DRUG (FREE TEXT): HERCEPTIN
     Route: 058
  112. TRASTUZUMAB [Suspect]
     Active Substance: TRASTUZUMAB
     Dosage: 600MG, EVERY 3 WEEKS, CUMULATIVE DOSE: 685.7143 MG
     Dates: start: 20150825, end: 20151117
  113. TRASTUZUMAB [Suspect]
     Active Substance: TRASTUZUMAB
     Dosage: UNK
  114. TRASTUZUMAB [Suspect]
     Active Substance: TRASTUZUMAB
     Indication: Breast cancer metastatic
     Dosage: 600 MG, QD LOADING DOSE CUMULATIVE DOSE: 2400 MG)
     Dates: start: 20151217, end: 20160308
  115. TRASTUZUMAB [Suspect]
     Active Substance: TRASTUZUMAB
     Dosage: 600 MILLIGRAM Q3WKS DATE OF MOST RECENT DOSE (600MG ) OF TRASTUZUMAB: 23/JUN/2016 (CUMULATIVE DOSE:
     Route: 042
     Dates: start: 20151217, end: 20160308
  116. TRASTUZUMAB [Suspect]
     Active Substance: TRASTUZUMAB
     Dosage: 600 MG 3 PER WEEK
     Route: 042
  117. TRASTUZUMAB [Suspect]
     Active Substance: TRASTUZUMAB
     Dosage: 483 MG, EVERY 3 WEEKS; CUMULATIVE DOSE TO FIRST REACTION: 46.0 MG
     Route: 042
     Dates: start: 20150803, end: 20150803
  118. TRASTUZUMAB [Suspect]
     Active Substance: TRASTUZUMAB
     Dosage: 600 MG, Q3W (CUMULATIVE DOSE: 2400 MG)
     Route: 058
     Dates: start: 20160723
  119. TRASTUZUMAB [Suspect]
     Active Substance: TRASTUZUMAB
     Dosage: 483 MILLIGRAM Q3WKS (CUMULATIVE DOSE: 2400 MG)
     Route: 042
     Dates: start: 20150803, end: 20150803
  120. TRASTUZUMAB [Suspect]
     Active Substance: TRASTUZUMAB
     Dosage: 483 MG, QD LOADING DOSE (CUMULATIVE DOSE: 2400 MG)
     Route: 042
     Dates: start: 20150803, end: 20150803
  121. TRASTUZUMAB [Suspect]
     Active Substance: TRASTUZUMAB
     Dosage: 600 MILLIGRAM, Q3WK, MAINTAINANCE DOSE (CUMULATIVE DOSE: 2400 MG)
     Route: 058
     Dates: start: 20150825, end: 20151117
  122. TRASTUZUMAB [Suspect]
     Active Substance: TRASTUZUMAB
     Dosage: 600 MG, Q3W/ 600 MILLIGRAM, 3 TIMES IN A WEEK, MAINTAINANCE DOSE (CUMULATIVE DOSE: 483 MG)
     Route: 042
     Dates: start: 20150825, end: 20151117
  123. TRASTUZUMAB [Suspect]
     Active Substance: TRASTUZUMAB
     Dosage: 483 MG 3 PER WEEK
     Route: 042
  124. TRASTUZUMAB [Suspect]
     Active Substance: TRASTUZUMAB
     Dosage: 600 MILLIGRAM, Q3WK (CUMULATIVE DOSE: 2400 MG)
     Route: 042
     Dates: start: 20160623
  125. TRASTUZUMAB [Suspect]
     Active Substance: TRASTUZUMAB
     Dosage: 600 MG, TIW (CUMULATIVE DOSE: 483 MG)
     Route: 042
     Dates: start: 20160623
  126. TRASTUZUMAB [Suspect]
     Active Substance: TRASTUZUMAB
     Dosage: 600 MG, Q3W (DATE OF MOST RECENT DOSE (600MG ) OF TRASTUZUMAB: 23/JUN/2016) (CUMULATIVE DOSE: 2400 M
     Route: 042
     Dates: start: 20151217, end: 20160308
  127. TRASTUZUMAB [Suspect]
     Active Substance: TRASTUZUMAB
     Dosage: 483 MILLIGRAM, Q3WK (CUMULATIVE DOSE: 2400 MG)
     Route: 042
     Dates: start: 20150803, end: 20150803
  128. TRASTUZUMAB [Suspect]
     Active Substance: TRASTUZUMAB
     Dosage: 600 MG EVERY 3 WEEKS  (DATE OF MOST RECENT DOSE (600MG ) OF TRASTUZUMAB: 23/JUN/2016)
     Route: 042
     Dates: start: 20151217, end: 20160308
  129. TRASTUZUMAB [Suspect]
     Active Substance: TRASTUZUMAB
     Dosage: 600 MG Q3WKS (CUMULATIVE DOSE: 9342.857 MG)
     Route: 042
  130. TRASTUZUMAB [Suspect]
     Active Substance: TRASTUZUMAB
     Dosage: 600 MG 3 PER WEEK
     Route: 042
  131. TRASTUZUMAB [Suspect]
     Active Substance: TRASTUZUMAB
     Dosage: 600 MG, QD LOADING DOSE CUMULATIVE DOSE: 82825.0 MG)
     Route: 042
     Dates: start: 20151217, end: 20160308
  132. TRASTUZUMAB [Suspect]
     Active Substance: TRASTUZUMAB
     Dosage: 600 MG, Q3W LOADING DOSE (CUMULATIVE DOSE: 483 MG)
     Route: 042
     Dates: start: 20160308, end: 20160308
  133. TRASTUZUMAB [Suspect]
     Active Substance: TRASTUZUMAB
     Dosage: 600 MG, TIW (CUMULATIVE DOSE: 483MG)
     Route: 042
     Dates: start: 20160623
  134. TRASTUZUMAB [Suspect]
     Active Substance: TRASTUZUMAB
     Dosage: 483 MG, QD (CUMULATIVE DOSE: 966.0 MG)
     Dates: start: 20150803, end: 20150803
  135. TRASTUZUMAB [Suspect]
     Active Substance: TRASTUZUMAB
     Dosage: 1800 MG, EVERY 1 WEEK (CUMULATVE DOSE: 84085.71MG)
     Dates: start: 20160623
  136. TRASTUZUMAB [Suspect]
     Active Substance: TRASTUZUMAB
     Dosage: 600 MG, Q3W LOADING DOSE
     Route: 058
     Dates: start: 20160308, end: 20160308
  137. TRASTUZUMAB [Suspect]
     Active Substance: TRASTUZUMAB
     Dosage: 600 MG, Q3W (CUMULATIVE DOSE: 483 MG)
     Dates: start: 20160723
  138. TRASTUZUMAB [Suspect]
     Active Substance: TRASTUZUMAB
     Dosage: 1800 MG, EVERY 1 WEEK (CUMULATVE DOSE: 84085.71MG)
     Dates: start: 20160623
  139. TRASTUZUMAB [Suspect]
     Active Substance: TRASTUZUMAB
     Dosage: 483 MG 3 PER WEEK
     Route: 042
  140. TRASTUZUMAB [Suspect]
     Active Substance: TRASTUZUMAB
     Dosage: 600 MG, Q3W LOADING DOSE (CUMULATIVE DOSE: 483 MG)
     Route: 042
     Dates: start: 20160308, end: 20160308
  141. TRASTUZUMAB [Suspect]
     Active Substance: TRASTUZUMAB
     Dosage: 483 MG, QD LOADING DOSE (CUMULATIVE DOSE: 483 MG)
     Route: 042
     Dates: start: 20150803, end: 20150803
  142. TRASTUZUMAB [Suspect]
     Active Substance: TRASTUZUMAB
     Dosage: 600 MG EVERY 3 WEEK, 600 MG, Q3W/ 600 MILLIGRAM, 3 TIMES IN A WEEK, MAINTAINANCE DOSE
     Route: 042
     Dates: start: 20150825, end: 20151117
  143. TRASTUZUMAB [Suspect]
     Active Substance: TRASTUZUMAB
     Dosage: 600 MG, Q3W (CUMULATIVE DOSE: 483MG)
     Route: 042
     Dates: start: 20160723
  144. TRASTUZUMAB [Suspect]
     Active Substance: TRASTUZUMAB
     Dosage: 483 MG, QD (CUMULATIVE DOSE: 966.0 MG)
     Dates: start: 20150803, end: 20150803
  145. TRASTUZUMAB [Suspect]
     Active Substance: TRASTUZUMAB
     Dosage: 1800 MILLIGRAM, Q3WK (CUMULATIVE DOSE: 2400 MG)
     Dates: start: 20160623
  146. TRASTUZUMAB [Suspect]
     Active Substance: TRASTUZUMAB
     Dosage: 600 MG 3 PER WEEK, DATE OF MOST RECENT DOSE (600MG ) OF TRASTUZUMAB: 23/JUN/2016
     Route: 042
  147. TRASTUZUMAB [Suspect]
     Active Substance: TRASTUZUMAB
     Dosage: 483 MG, QD (CUMULATIVE DOSE: 966.0 MG)
     Dates: start: 20150803, end: 20150803
  148. TRASTUZUMAB [Suspect]
     Active Substance: TRASTUZUMAB
     Dosage: 600 MG 3 PER WEEK, DATE OF MOST RECENT DOSE (600MG ) OF TRASTUZUMAB: 23/JUN/2016
     Route: 042
  149. TRASTUZUMAB [Suspect]
     Active Substance: TRASTUZUMAB
     Dosage: 600 MG EVERY 3 WEEK, 600 MG, Q3W/ 600 MILLIGRAM, 3 TIMES IN A WEEK, MAINTAINANCE DOSE
     Route: 058
     Dates: start: 20150825, end: 20151117
  150. TRASTUZUMAB [Suspect]
     Active Substance: TRASTUZUMAB
     Dosage: 600 MG, QD LOADING DOSE (CUMULATIVE DOSE: 483 MG)
     Route: 042
     Dates: start: 20151217, end: 20160308
  151. TRASTUZUMAB [Suspect]
     Active Substance: TRASTUZUMAB
     Dosage: 600 MG, Q3W LOADING DOSE (CUMULATIVE DOSE: 2400 MG)
     Route: 058
     Dates: start: 20160308, end: 20160308
  152. TRASTUZUMAB [Suspect]
     Active Substance: TRASTUZUMAB
     Dosage: UNK
  153. TAXOTERE [Suspect]
     Active Substance: DOCETAXEL
     Indication: Breast cancer metastatic
     Dosage: 120 MG, Q3W (CUMULATIVE DOSE TO FIRST REACTION: 75 MG)
     Route: 042
     Dates: start: 20150814
  154. SODIUM HYALURONATE [Suspect]
     Active Substance: HYALURONATE SODIUM
     Dosage: 600 MG, Q3W (CUMULATIVE DOSE: 685.7143 MG)
     Dates: start: 20150825, end: 20151117
  155. SODIUM HYALURONATE [Suspect]
     Active Substance: HYALURONATE SODIUM
     Dosage: 600 MG, Q3W (CUMULATIVE DOSE: 685.7143 MG)
     Dates: start: 20150825, end: 20151117
  156. SODIUM HYALURONATE [Suspect]
     Active Substance: HYALURONATE SODIUM
     Dosage: 600 MG, Q3W
     Dates: start: 20150825, end: 20151117
  157. SODIUM HYALURONATE [Suspect]
     Active Substance: HYALURONATE SODIUM
     Dosage: 600 MG EVERY 3 WEEK (CUMULATIVE DOSE: 8457.143 MG)
     Dates: start: 20160523
  158. SODIUM HYALURONATE [Suspect]
     Active Substance: HYALURONATE SODIUM
     Dosage: UNK, QD
     Dates: start: 20160308, end: 20160308
  159. SODIUM HYALURONATE [Suspect]
     Active Substance: HYALURONATE SODIUM
     Dosage: UNK UNK, QD
     Dates: start: 20160308, end: 20160308
  160. SODIUM HYALURONATE [Suspect]
     Active Substance: HYALURONATE SODIUM
     Dosage: 600 MG, Q3W
     Dates: start: 20160623
  161. SODIUM HYALURONATE [Suspect]
     Active Substance: HYALURONATE SODIUM
     Dosage: 600 MG, Q3W (CUMULATIVE DOSE: 685.7143 MG)
     Dates: start: 20150825, end: 20151117
  162. SODIUM HYALURONATE [Suspect]
     Active Substance: HYALURONATE SODIUM
     Dosage: 600 MG, Q3W (CUMULATIVE DOSE: 8457.143 MG)
     Dates: start: 20160523
  163. SODIUM HYALURONATE [Suspect]
     Active Substance: HYALURONATE SODIUM
     Dosage: UNK, QD
     Dates: start: 20160308, end: 20160308
  164. SODIUM HYALURONATE [Suspect]
     Active Substance: HYALURONATE SODIUM
     Dosage: 600 MG EVERY 3 WEEK (CUMULATIVE DOSE: 8457.143 MG)
     Dates: start: 20160523
  165. SODIUM HYALURONATE [Suspect]
     Active Substance: HYALURONATE SODIUM
     Dosage: UNK, QD/UNK UNK, QD
     Dates: start: 20160308, end: 20160308
  166. SODIUM HYALURONATE [Suspect]
     Active Substance: HYALURONATE SODIUM
     Dosage: UNK
  167. BONVIVA [Suspect]
     Active Substance: IBANDRONATE SODIUM
     Indication: Metastases to bone
     Dosage: 50 MG, QD (DOSE FORM: 245)
     Route: 048
     Dates: start: 20150518
  168. AROMASIN [Suspect]
     Active Substance: EXEMESTANE
     Dosage: 25 MG, EVERY 1 DAY
     Route: 048
  169. HERCEPTIN [Suspect]
     Active Substance: TRASTUZUMAB
     Indication: Breast cancer metastatic
     Dosage: 600 MG, EVERY 3 WEEKS; CUMULATIVE DOSE TO FIRST REACTION: 685.7143 MG
     Route: 058
     Dates: start: 20150825, end: 20151117
  170. HERCEPTIN [Suspect]
     Active Substance: TRASTUZUMAB
     Dosage: 600 MG, QD (LOADING DOSE) (DOSE FORM: 230; CUMULATIVE DOSE: 78025.0 MG)
     Route: 042
     Dates: start: 20151217, end: 20160308
  171. HERCEPTIN [Suspect]
     Active Substance: TRASTUZUMAB
     Dosage: 600 MG EVERY 3 WEEKS (CUMULATIVE DOSE: 10200.0 MG)
     Route: 058
     Dates: start: 20160723
  172. HERCEPTIN [Suspect]
     Active Substance: TRASTUZUMAB
     Dosage: 600 MG EVERY 3 WEEKS LOADING DOSE (CUMULATIVE DOSE: 6286.905 MG)
     Route: 058
     Dates: start: 20160308, end: 20160308
  173. HERCEPTIN [Suspect]
     Active Substance: TRASTUZUMAB
     Dosage: 600 MG, EVERY 3 WEEKS; CUMULATIVE DOSE TO FIRST REACTION: 9342.857 MG
     Route: 058
     Dates: start: 20160623
  174. HERCEPTIN [Suspect]
     Active Substance: TRASTUZUMAB
     Dosage: 483 MG, QD (DOSE FORM: 230; CUMULATIVE DOSE: 2898.0 MG)
     Route: 042
     Dates: start: 20150803, end: 20150803
  175. HERCEPTIN [Suspect]
     Active Substance: TRASTUZUMAB
     Dosage: UNK
  176. PERJETA [Suspect]
     Active Substance: PERTUZUMAB
     Indication: Breast cancer metastatic
     Dosage: 420 MG 3 PER WEEK, DATE OF MOST RECENT DOSE (420 MG) OF PERTUZUMAB 08/MAR/2016 MAINTENANCE DOSE, ADD
     Route: 042
  177. PERJETA [Suspect]
     Active Substance: PERTUZUMAB
     Dosage: 840 MG, EVERY 3 WEEKS; DATE OF MOST RECENT DOSE (420 MG) OF PERTUZUMAB 08/MAR/2016  1X (LOADING DOSE
     Route: 042
     Dates: start: 20160623, end: 20160623
  178. PERJETA [Suspect]
     Active Substance: PERTUZUMAB
     Dosage: 420 MG 3 PER WEEK [DOSE TEXT: DATE OF MOST RECENT DOSE (420 MG) OF PERTUZUMAB 17/NOV/2015)
     Route: 042
  179. PERJETA [Suspect]
     Active Substance: PERTUZUMAB
     Dosage: 840 MG (LOADING DOSE; DOSE FORM: 230)
     Route: 042
     Dates: start: 20160623, end: 20160623
  180. PERJETA [Suspect]
     Active Substance: PERTUZUMAB
     Dosage: 420 MG 3 PER WEEK [DOSE TEXT: DATE OF MOST RECENT DOSE (420 MG) OF PERTUZUMAB 17/NOV/2015)
     Route: 042
  181. PERJETA [Suspect]
     Active Substance: PERTUZUMAB
     Dosage: 420 MG, EVERY 3 WEEKS; DATE OF MOST RECENT DOSE (420 MG) OF PERTUZUMAB 08/MAR/2016 MAINTAINANCE DOSE
     Route: 042
     Dates: start: 20151217, end: 20160308
  182. PERJETA [Suspect]
     Active Substance: PERTUZUMAB
     Dosage: 420 MG 3 PER WEEK, DATE OF MOST RECENT DOSE (420 MG) OF PERTUZUMAB 08/MAR/2016 MAINTENANCE DOSE, ADD
     Route: 042
  183. PERJETA [Suspect]
     Active Substance: PERTUZUMAB
     Dosage: 840 MG, QD, 1X, ONE CYCLE, LOADING DOSE; IN TOTAL
     Route: 042
  184. PERJETA [Suspect]
     Active Substance: PERTUZUMAB
     Dosage: EVERY 1 DAY (ONE CYCLE (LOADING DOSE); DOSE FORM: 230
     Route: 042
  185. PERJETA [Suspect]
     Active Substance: PERTUZUMAB
     Dosage: 420 MG, QD (DOSE FORM: 230; CUMULATIVE DOSE: 2600.8333 MG)
     Route: 042
     Dates: start: 20151217, end: 20160308
  186. PERJETA [Suspect]
     Active Substance: PERTUZUMAB
     Dosage: 420 MG, EVERY 1 DAY; MAINTENANCE DOSE; CUMULATIVE DOSE TO FIRST REACTION: 146580.0 MG
     Route: 042
     Dates: start: 20160715
  187. PERJETA [Suspect]
     Active Substance: PERTUZUMAB
     Dosage: 840 MG 3 PER WEEK, DATE OF MOST RECENT DOSE (420 MG) OF PERTUZUMAB 08/MAR/2016 1X (LOADING DOSE); IN
     Route: 042
  188. PERJETA [Suspect]
     Active Substance: PERTUZUMAB
     Dosage: 420 MG EVERY 3 WEEK (MAINTAINANCE DOSE)(DOSE FORM: 230; CUMULATIVE DOSE: 320.0 MG); DATE OF MOST REC
     Route: 042
     Dates: start: 20150825, end: 20151117
  189. PERJETA [Suspect]
     Active Substance: PERTUZUMAB
     Dosage: 840 MG, QD, 1X, ONE CYCLE, LOADING DOSE; IN TOTAL
     Route: 042
  190. PERJETA [Suspect]
     Active Substance: PERTUZUMAB
     Dosage: 840 MG 3 PER WEEK, DATE OF MOST RECENT DOSE (420 MG) OF PERTUZUMAB 08/MAR/2016 1X (LOADING DOSE); IN
     Route: 042
  191. PERJETA [Suspect]
     Active Substance: PERTUZUMAB
     Dosage: 420 MG, QD (MAINTAINANCE DOSE)(DOSE FORM: 230; CUMULATIVE DOSE: 143220.0 MG)
     Route: 042
     Dates: start: 20160715
  192. PERJETA [Suspect]
     Active Substance: PERTUZUMAB
     Dosage: MAINTENANCE DOSE
     Route: 042
  193. PERJETA [Suspect]
     Active Substance: PERTUZUMAB
     Dosage: 840 MG, EVERY 1 DAY; CUMULATIVE DOSE TO FIRST REACTION: 2520.0 MG; 1X, ONE CYCLE, LOADING DOSE; IN T
     Route: 042
     Dates: start: 20150804, end: 20150804
  194. PERJETA [Suspect]
     Active Substance: PERTUZUMAB
     Dosage: UNK
  195. PERTUZUMAB [Suspect]
     Active Substance: PERTUZUMAB
     Indication: Breast cancer metastatic
     Dosage: 840 MG, TOTAL FREQUENCY (840 MG, 1X (LOADING DOSE))
     Route: 042
     Dates: start: 20160623, end: 20160623
  196. PERTUZUMAB [Suspect]
     Active Substance: PERTUZUMAB
     Dosage: 420 MG, Q3W (CUMULATIVE DOSE: 18859.166 MG)
     Route: 042
     Dates: start: 20151217, end: 20160308
  197. PERTUZUMAB [Suspect]
     Active Substance: PERTUZUMAB
     Dosage: 420 MG, Q3W (DATE OF MOST RECENT DOSE (420 MG) OF PERTUZUMAB 08/MAR/2016 MAINTAINANCE DOSE) (CUMULAT
     Route: 042
     Dates: start: 20151217, end: 20160308
  198. PERTUZUMAB [Suspect]
     Active Substance: PERTUZUMAB
     Dosage: 840 MG, 1X (LOADING DOSE, INTRAVENOUS USE)
     Route: 042
     Dates: start: 20160623, end: 20160623
  199. PERTUZUMAB [Suspect]
     Active Substance: PERTUZUMAB
     Dosage: 420 MG, QD, MAINTENANCE DOSE, CUMULATIVE DOSE: 146580.0 MG
     Route: 042
     Dates: start: 20160715
  200. PERTUZUMAB [Suspect]
     Active Substance: PERTUZUMAB
     Dosage: 840 MG, UNK ONE CYCLE (LOADING DOSE), INTRAVENOUS ROUTE
     Route: 042
     Dates: start: 20150804, end: 20150804
  201. PERTUZUMAB [Suspect]
     Active Substance: PERTUZUMAB
     Dosage: 840 MG 1X, ONE CYCLE, LOADING DOSE; IN TOTAL (CUMULATIVE DOSE: 2520.0 MG)
     Route: 042
     Dates: start: 20150804, end: 20150804
  202. PERTUZUMAB [Suspect]
     Active Substance: PERTUZUMAB
     Dosage: 420 MG, Q3W MAINTAINANCE DOSE
     Route: 042
     Dates: start: 20151217, end: 20160308
  203. PERTUZUMAB [Suspect]
     Active Substance: PERTUZUMAB
     Dosage: 420 MG 3 PER WEEK/ MAINTENANCE DOSE
     Route: 042
     Dates: start: 20150825, end: 20151117
  204. PERTUZUMAB [Suspect]
     Active Substance: PERTUZUMAB
     Dosage: 420 MG, QD, MAINTENANCE DOSE, CUMULATIVE DOSE: 146580.0 MG
     Route: 042
     Dates: start: 20160715
  205. PERTUZUMAB [Suspect]
     Active Substance: PERTUZUMAB
     Dosage: 420 MG 3 PER WEEK/ MAINTENANCE DOSE
     Route: 042
     Dates: start: 20150825, end: 20151117
  206. PERTUZUMAB [Suspect]
     Active Substance: PERTUZUMAB
     Dosage: 840 MG, TOTAL FREQUENCY (ONE CYCLE (LOADING DOSE))
     Route: 042
     Dates: start: 20150804
  207. PERTUZUMAB [Suspect]
     Active Substance: PERTUZUMAB
     Dosage: 420 MG, QD (MAINTAINANCE DOSE) (CUMULATIVE DOSE: 14639.9999 MG)
     Route: 042
     Dates: start: 20160715
  208. PERTUZUMAB [Suspect]
     Active Substance: PERTUZUMAB
     Dosage: 840 MILLIGRAM ONE CYCLE (LOADING DOSE)
     Route: 042
     Dates: start: 20150804
  209. PERTUZUMAB [Suspect]
     Active Substance: PERTUZUMAB
     Dosage: 840 MG EVERY 3 WEEKS (DATE OF MOST RECENT DOSE (420 MG) OF PERTUZUMAB 08/MAR/2016 1X (LOADING DOSE);
     Route: 042
     Dates: start: 20160623, end: 20160623
  210. PERTUZUMAB [Suspect]
     Active Substance: PERTUZUMAB
     Dosage: 840 MG, 1X (LOADING DOSE) , 1 TOTAL
     Route: 042
     Dates: start: 20160623, end: 20160623
  211. PERTUZUMAB [Suspect]
     Active Substance: PERTUZUMAB
     Dosage: 420 MG, EVERY 3 WEEKS (MAINTAINANCE DOSE)
     Route: 042
     Dates: start: 20150825, end: 20151117
  212. PERTUZUMAB [Suspect]
     Active Substance: PERTUZUMAB
     Dosage: 840 MG, 1X (LOADING DOSE) (CUMULATIVE DOSE AT FIRST REACTION: 30160 MG)
     Route: 042
     Dates: start: 20160623, end: 20160623
  213. PERTUZUMAB [Suspect]
     Active Substance: PERTUZUMAB
     Dosage: 840 MG, 1X (LOADING DOSE)
     Route: 042
     Dates: start: 20160623, end: 20160623
  214. PERTUZUMAB [Suspect]
     Active Substance: PERTUZUMAB
     Dosage: 840 MG, 1X; IN TOTAL; SOLUTION FOR INFUSION (PREVIOUS CUMULATIVE DOSE: 1680 MG) 840 MG, UNK ONE CYCL
     Route: 042
     Dates: start: 20150804, end: 20150804
  215. PERTUZUMAB [Suspect]
     Active Substance: PERTUZUMAB
     Dosage: 840 MG, TOTAL FREQUENCY (ONE CYCLE (LOADING DOSE))
     Route: 042
     Dates: start: 20150804
  216. PERTUZUMAB [Suspect]
     Active Substance: PERTUZUMAB
     Dosage: 420 MG, Q3W (DATE OF MOST RECENT DOSE (420 MG) OF PERTUZUMAB (420 MG) OF PERTUZUMAB 17/NOV/2015) (CU
     Route: 042
     Dates: start: 20150825, end: 20151117
  217. PERTUZUMAB [Suspect]
     Active Substance: PERTUZUMAB
     Dosage: 420 MG, QD (MAINTAINANCE DOSE) (CUMULATIVE DOSE: 307440 MG)
     Route: 042
     Dates: start: 20160715
  218. PERTUZUMAB [Suspect]
     Active Substance: PERTUZUMAB
     Dosage: 840 MILLIGRAM Q3WEEK DATE OF MOST RECENT DOSE (420 MG) OF PERTUZUMAB 08/MAR/2016 1X (LOADING DOSE);
     Route: 042
     Dates: start: 20160623, end: 20160623
  219. PERTUZUMAB [Suspect]
     Active Substance: PERTUZUMAB
     Dosage: 420 MG, Q3W MAINTAINANCE DOSE (CUMULATIVE DOSE: 480.0MG)
     Route: 042
     Dates: start: 20150825, end: 20151117
  220. PERTUZUMAB [Suspect]
     Active Substance: PERTUZUMAB
     Dosage: 840 MG, TOTAL FREQUENCY (840 MG, 1X (LOADING DOSE))
     Route: 042
     Dates: start: 20160623, end: 20160623
  221. PERTUZUMAB [Suspect]
     Active Substance: PERTUZUMAB
     Dosage: 420 MILLIGRAM, QD MAINTENANCE DOSE (CUMULATIVE DOSE: 146580.0 MG)
     Route: 042
     Dates: start: 20160715
  222. PERTUZUMAB [Suspect]
     Active Substance: PERTUZUMAB
     Dosage: UNK
  223. HYALURONIDASE (HUMAN RECOMBINANT) [Suspect]
     Active Substance: HYALURONIDASE (HUMAN RECOMBINANT)
     Dosage: 600 MILLIGRAM Q3WEEKS (CUMULATIVE DOSE: 6286.905 MG)
     Dates: start: 20160308, end: 20160308
  224. HYALURONIDASE (HUMAN RECOMBINANT) [Suspect]
     Active Substance: HYALURONIDASE (HUMAN RECOMBINANT)
     Dosage: 600 MILLIGRAM, 2 PER WEEK,(CUMULATIVE DOSE: 14014.286 MG)
     Dates: start: 20160623
  225. HYALURONIDASE (HUMAN RECOMBINANT) [Suspect]
     Active Substance: HYALURONIDASE (HUMAN RECOMBINANT)
     Dosage: 600 MILLIGRAM, 2 PER WEEK,(CUMULATIVE DOSE: 14014.286 MG)
     Dates: start: 20160623
  226. HYALURONIDASE (HUMAN RECOMBINANT) [Suspect]
     Active Substance: HYALURONIDASE (HUMAN RECOMBINANT)
     Dosage: 1800 MILLIGRAM, 1/WEEK (CUMULATIVE DOSE: 6171.4287 MG)
     Dates: start: 20150825, end: 20151117
  227. HYALURONIDASE (HUMAN RECOMBINANT) [Suspect]
     Active Substance: HYALURONIDASE (HUMAN RECOMBINANT)
     Dosage: 600 MILLIGRAM, 2 PER WEEK,(CUMULATIVE DOSE: 14014.286 MG)
     Dates: start: 20160623
  228. HYALURONIDASE (HUMAN RECOMBINANT) [Suspect]
     Active Substance: HYALURONIDASE (HUMAN RECOMBINANT)
     Dosage: 1800 MILLIGRAM, 1/WEEK (CUMULATIVE DOSE: 6171.4287 MG)
     Dates: start: 20150825, end: 20151117
  229. HYALURONIDASE (HUMAN RECOMBINANT) [Suspect]
     Active Substance: HYALURONIDASE (HUMAN RECOMBINANT)
     Dosage: 1800 MILLIGRAM, 1/WEEK (CUMULATIVE DOSE: 6171.4287 MG)
     Dates: start: 20150825, end: 20151117
  230. HYALURONIDASE (HUMAN RECOMBINANT) [Suspect]
     Active Substance: HYALURONIDASE (HUMAN RECOMBINANT)
     Dosage: 600 MILLIGRAM Q3WEEKS (CUMULATIVE DOSE: 6286.905 MG)
     Dates: start: 20160308, end: 20160308
  231. HYALURONIDASE (HUMAN RECOMBINANT) [Suspect]
     Active Substance: HYALURONIDASE (HUMAN RECOMBINANT)
     Dosage: 600 MILLIGRAM, Q2WEEKS (CUMULATIVE DOSE: 14014.286 MG)
     Dates: start: 20160623
  232. HYALURONIDASE (HUMAN RECOMBINANT) [Suspect]
     Active Substance: HYALURONIDASE (HUMAN RECOMBINANT)
     Dosage: 600 MILLIGRAM Q3WEEKS (CUMULATIVE DOSE: 6286.905 MG)
     Dates: start: 20160308, end: 20160308
  233. HYALURONIDASE (HUMAN RECOMBINANT) [Suspect]
     Active Substance: HYALURONIDASE (HUMAN RECOMBINANT)
     Dosage: 600 MILLIGRAM Q3WEEKS (CUMULATIVE DOSE: 6286.905 MG)
     Dates: start: 20160308, end: 20160308
  234. HYALURONIDASE (HUMAN RECOMBINANT) [Suspect]
     Active Substance: HYALURONIDASE (HUMAN RECOMBINANT)
     Dosage: 1800 MILLIGRAM, 1/WEEK (CUMULATIVE DOSE: 6171.4287 MG)
     Dates: start: 20150825, end: 20151117
  235. HYALURONIDASE (HUMAN RECOMBINANT) [Suspect]
     Active Substance: HYALURONIDASE (HUMAN RECOMBINANT)
     Dosage: UNK
  236. HYALURONIDASE (HUMAN RECOMBINANT) [Suspect]
     Active Substance: HYALURONIDASE (HUMAN RECOMBINANT)
     Indication: Breast cancer metastatic
     Dosage: 120 MG EVERY 3 WEEKS
     Route: 042
     Dates: start: 20150804, end: 20151117
  237. HYALURONIDASE (HUMAN RECOMBINANT) [Suspect]
     Active Substance: HYALURONIDASE (HUMAN RECOMBINANT)
     Dosage: 600 MILLIGRAM, Q3W (CUMULATIVE DOSE TO FIRST REACTION: 6286.905 MG)
     Dates: start: 20160308
  238. HYALURONIDASE (HUMAN RECOMBINANT) [Suspect]
     Active Substance: HYALURONIDASE (HUMAN RECOMBINANT)
     Dosage: 600 MILLIGRAM, Q3W (CUMULATIVE DOSE TO FIRST REACTION: 6286.905 MG)
     Dates: start: 20160308
  239. HYALURONIDASE (HUMAN RECOMBINANT) [Suspect]
     Active Substance: HYALURONIDASE (HUMAN RECOMBINANT)
     Dosage: 1800MG EVERY 1 WEEK (CUMULATIVE DOSE: 6171.4287 MG)
     Route: 042
     Dates: start: 20150825, end: 20151117
  240. HYALURONIDASE (HUMAN RECOMBINANT) [Suspect]
     Active Substance: HYALURONIDASE (HUMAN RECOMBINANT)
     Dosage: 600 MILLIGRAM, Q3W
     Route: 042
     Dates: start: 20160308, end: 20160308
  241. HYALURONIDASE (HUMAN RECOMBINANT) [Suspect]
     Active Substance: HYALURONIDASE (HUMAN RECOMBINANT)
     Dosage: 120 MG EVERY 3 WEEKS (CUMULATIVE DOSE: 40.0 MG)
     Route: 042
     Dates: start: 20150808, end: 20151117
  242. HYALURONIDASE (HUMAN RECOMBINANT) [Suspect]
     Active Substance: HYALURONIDASE (HUMAN RECOMBINANT)
     Dosage: 600 MILLIGRAM, 3 TIMES IN A WEEK, MAINTAINANCE DOSE
     Route: 042
     Dates: start: 20150825, end: 20151117
  243. HYALURONIDASE (HUMAN RECOMBINANT) [Suspect]
     Active Substance: HYALURONIDASE (HUMAN RECOMBINANT)
     Dosage: 1800MG EVERY 1 WEEK (CUMULATIVE DOSE: 6171.4287 MG)
     Dates: start: 20150825, end: 20151117
  244. HYALURONIDASE (HUMAN RECOMBINANT) [Suspect]
     Active Substance: HYALURONIDASE (HUMAN RECOMBINANT)
     Dosage: 600 MG, Q3W
     Route: 042
     Dates: start: 20160723
  245. HYALURONIDASE (HUMAN RECOMBINANT) [Suspect]
     Active Substance: HYALURONIDASE (HUMAN RECOMBINANT)
     Dosage: 120 MILLIGRAM EVERY 3 WEEKS (CUMULATIVE DOSE: 17.142857 MG)
     Route: 042
     Dates: start: 20150804, end: 20151117
  246. HYALURONIDASE (HUMAN RECOMBINANT) [Suspect]
     Active Substance: HYALURONIDASE (HUMAN RECOMBINANT)
     Dosage: 600MG EVERY 2 WEEKS (CUMULATIVE DOSE: 14014.286 MG)
     Dates: start: 20160623
  247. HYALURONIDASE (HUMAN RECOMBINANT) [Suspect]
     Active Substance: HYALURONIDASE (HUMAN RECOMBINANT)
     Dosage: 600 MG EVERY 3 WEEKS (CUMULATIVE DOSE: 3944.0476 MG)
     Route: 042
     Dates: start: 20151217, end: 20160308
  248. HYALURONIDASE (HUMAN RECOMBINANT) [Suspect]
     Active Substance: HYALURONIDASE (HUMAN RECOMBINANT)
     Dosage: 1800MG EVERY 1 WEEK (CUMULATIVE DOSE: 6171.4287 MG)
     Dates: start: 20150825, end: 20151117
  249. HYALURONIDASE (HUMAN RECOMBINANT) [Suspect]
     Active Substance: HYALURONIDASE (HUMAN RECOMBINANT)
     Dosage: 600 MILLIGRAM, 3 TIMES IN A WEEK, MAINTAINANCE DOSE (CUMULATIVE DOSE TO FIRST REACTION: 3000 MG)
     Route: 042
     Dates: start: 20150825, end: 20151117
  250. HYALURONIDASE (HUMAN RECOMBINANT) [Suspect]
     Active Substance: HYALURONIDASE (HUMAN RECOMBINANT)
     Dosage: 600MG EVERY 2 WEEKS (CUMULATIVE DOSE: 14014.286 MG)
     Dates: start: 20160623
  251. HYALURONIDASE (HUMAN RECOMBINANT) [Suspect]
     Active Substance: HYALURONIDASE (HUMAN RECOMBINANT)
     Dosage: 600 MILLIGRAM, Q3W (CUMULATIVE DOSE TO FIRST REACTION: 3000 MG)
     Route: 042
     Dates: start: 20160623
  252. HYALURONIDASE (HUMAN RECOMBINANT) [Suspect]
     Active Substance: HYALURONIDASE (HUMAN RECOMBINANT)
     Dosage: 600 MILLIGRAM, Q3W (CUMULATIVE DOSE TO FIRST REACTION: 6286.905 MG)
     Dates: start: 20160308, end: 20160308
  253. HYALURONIDASE (HUMAN RECOMBINANT) [Suspect]
     Active Substance: HYALURONIDASE (HUMAN RECOMBINANT)
     Dosage: 120 MILLIGRAM, Q3WK
     Route: 042
     Dates: start: 20150814, end: 20151117
  254. HYALURONIDASE (HUMAN RECOMBINANT) [Suspect]
     Active Substance: HYALURONIDASE (HUMAN RECOMBINANT)
     Dosage: 600 MG, Q3W (CUMULATIVE DOSE: 3000MG), SUBCUTANEOUS USE
     Route: 058
     Dates: start: 20160723
  255. HYALURONIDASE (HUMAN RECOMBINANT) [Suspect]
     Active Substance: HYALURONIDASE (HUMAN RECOMBINANT)
     Dosage: 600 MILLIGRAM, Q3W (CUMULATIVE DOSE TO FIRST REACTION: 3000 MG)
     Route: 042
     Dates: start: 20160308, end: 20160308
  256. HYALURONIDASE (HUMAN RECOMBINANT) [Suspect]
     Active Substance: HYALURONIDASE (HUMAN RECOMBINANT)
     Dosage: 600MG EVERY 2 WEEKS (CUMULATIVE DOSE: 14014.286 MG)
     Dates: start: 20160623
  257. HYALURONIDASE (HUMAN RECOMBINANT) [Suspect]
     Active Substance: HYALURONIDASE (HUMAN RECOMBINANT)
     Dosage: UNK, ORAL
     Route: 048
  258. HYALURONIDASE (HUMAN RECOMBINANT) [Suspect]
     Active Substance: HYALURONIDASE (HUMAN RECOMBINANT)
     Dosage: UNK
  259. HYALURONIDASE (HUMAN RECOMBINANT) [Suspect]
     Active Substance: HYALURONIDASE (HUMAN RECOMBINANT)
     Indication: Breast cancer metastatic
     Dosage: 600 MILLIGRAM, Q3W (CUMULATIVE DOSE: 9342.857 MG)
     Dates: start: 20160623
  260. HYALURONIDASE (HUMAN RECOMBINANT) [Suspect]
     Active Substance: HYALURONIDASE (HUMAN RECOMBINANT)
     Dosage: 600 MILLIGRAM, 3 TIMES IN A WEEK, MAINTAINANCE DOSE
     Dates: start: 20150825, end: 20151117
  261. HYALURONIDASE (HUMAN RECOMBINANT) [Suspect]
     Active Substance: HYALURONIDASE (HUMAN RECOMBINANT)
     Dosage: 600 MILLIGRAM, Q3W (CUMULATIVE DOSE: 30200 MG)
     Route: 058
     Dates: start: 20150825, end: 20151117
  262. HYALURONIDASE (HUMAN RECOMBINANT) [Suspect]
     Active Substance: HYALURONIDASE (HUMAN RECOMBINANT)
     Dosage: 600 MILLIGRAM, 3 TIMES IN A WEEK, MAINTAINANCE DOSE
     Dates: start: 20150825, end: 20151117
  263. HYALURONIDASE (HUMAN RECOMBINANT) [Suspect]
     Active Substance: HYALURONIDASE (HUMAN RECOMBINANT)
     Dosage: 600 MG, Q3W (CUMULATIVE DOSE: 685.7143 MG)
     Route: 058
     Dates: start: 20150825, end: 20151117
  264. HYALURONIDASE (HUMAN RECOMBINANT) [Suspect]
     Active Substance: HYALURONIDASE (HUMAN RECOMBINANT)
     Dosage: UNK
     Route: 058
     Dates: start: 20160308, end: 20160308
  265. HYALURONIDASE (HUMAN RECOMBINANT) [Suspect]
     Active Substance: HYALURONIDASE (HUMAN RECOMBINANT)
     Dosage: 600 MILLIGRAM, Q3W (CUMULATIVE DOSE: 20685.715 MG)
     Route: 058
     Dates: start: 20160623
  266. HYALURONIDASE (HUMAN RECOMBINANT) [Suspect]
     Active Substance: HYALURONIDASE (HUMAN RECOMBINANT)
     Dosage: STOPPED; ; SOLUTION FOR INJECTION
     Route: 058
  267. HYALURONIDASE (HUMAN RECOMBINANT) [Suspect]
     Active Substance: HYALURONIDASE (HUMAN RECOMBINANT)
     Dosage: 600 MG, Q3W
     Route: 042
     Dates: start: 20160308, end: 20160308
  268. HYALURONIDASE (HUMAN RECOMBINANT) [Suspect]
     Active Substance: HYALURONIDASE (HUMAN RECOMBINANT)
     Dosage: 600 MILLIGRAM, Q3WK
     Route: 058
     Dates: start: 20160308, end: 20160308
  269. HYALURONIDASE (HUMAN RECOMBINANT) [Suspect]
     Active Substance: HYALURONIDASE (HUMAN RECOMBINANT)
     Dosage: UNK
     Route: 058
     Dates: start: 20160308, end: 20160308
  270. HYALURONIDASE (HUMAN RECOMBINANT) [Suspect]
     Active Substance: HYALURONIDASE (HUMAN RECOMBINANT)
     Dosage: UNK
     Route: 048
  271. HYALURONIDASE (HUMAN RECOMBINANT) [Suspect]
     Active Substance: HYALURONIDASE (HUMAN RECOMBINANT)
     Dosage: 600 MG, Q3W
     Route: 042
     Dates: start: 20160623
  272. HYALURONIDASE (HUMAN RECOMBINANT) [Suspect]
     Active Substance: HYALURONIDASE (HUMAN RECOMBINANT)
     Dosage: 600 MG, Q3W MAINTAINANCE DOSE/600 MILLIGRAM, 3 TIMES IN A WEEK, MAINTAINANCE DOSE
     Route: 058
     Dates: start: 20150825, end: 20151117
  273. HYALURONIDASE (HUMAN RECOMBINANT) [Suspect]
     Active Substance: HYALURONIDASE (HUMAN RECOMBINANT)
     Dosage: 600 MG, Q3W (CUMULATIVE DOSE: 685.7143 MG)
     Route: 058
     Dates: start: 20150825, end: 20151117
  274. BENZYDAMINE HYDROCHLORIDE [Concomitant]
     Active Substance: BENZYDAMINE HYDROCHLORIDE
     Indication: Gingival swelling
     Dosage: 15 MG, QD (EVERY DAY)
     Dates: start: 20150308, end: 20150817
  275. BENZYDAMINE HYDROCHLORIDE [Concomitant]
     Active Substance: BENZYDAMINE HYDROCHLORIDE
     Indication: Metastases to bone
     Dosage: 30 MG, QD
     Route: 048
     Dates: start: 20150308
  276. BENZYDAMINE HYDROCHLORIDE [Concomitant]
     Active Substance: BENZYDAMINE HYDROCHLORIDE
     Indication: Mucosal inflammation
     Dosage: 15 MILLIGRAM, QD (CUMULATIVE DOSE: 18404.375 MG)
     Dates: start: 20150308
  277. BENZYDAMINE HYDROCHLORIDE [Concomitant]
     Active Substance: BENZYDAMINE HYDROCHLORIDE
     Dosage: 30 MG, QD (CUMULATIVE DOSE: 4378.75 MG)
     Route: 048
     Dates: start: 20150308
  278. BENZYDAMINE HYDROCHLORIDE [Concomitant]
     Active Substance: BENZYDAMINE HYDROCHLORIDE
     Dosage: 15 MG, EVERY 0.5 DAY
     Dates: start: 20150308
  279. BENZYDAMINE HYDROCHLORIDE [Concomitant]
     Active Substance: BENZYDAMINE HYDROCHLORIDE
     Dosage: 15 MG, QD (EVERY DAY)
     Dates: start: 20150308, end: 20150817
  280. BENZYDAMINE HYDROCHLORIDE [Concomitant]
     Active Substance: BENZYDAMINE HYDROCHLORIDE
     Dosage: 15 MG, QD
     Route: 048
     Dates: start: 20150308, end: 20150817
  281. BENZYDAMINE HYDROCHLORIDE [Concomitant]
     Active Substance: BENZYDAMINE HYDROCHLORIDE
     Dosage: UNK
     Dates: start: 201508
  282. BENZYDAMINE HYDROCHLORIDE [Concomitant]
     Active Substance: BENZYDAMINE HYDROCHLORIDE
     Dosage: 15 MG, QID (CUMULATIVE DOSE: 8757.5 MG)
     Route: 048
     Dates: start: 20150308, end: 20150817
  283. BENZYDAMINE HYDROCHLORIDE [Concomitant]
     Active Substance: BENZYDAMINE HYDROCHLORIDE
     Dosage: 15 MG, EVERY 6 HOURS/ QID
     Dates: start: 20150308, end: 20150817
  284. BENZYDAMINE HYDROCHLORIDE [Concomitant]
     Active Substance: BENZYDAMINE HYDROCHLORIDE
     Dosage: UNK
     Dates: start: 201508
  285. BENZYDAMINE HYDROCHLORIDE [Concomitant]
     Active Substance: BENZYDAMINE HYDROCHLORIDE
     Dosage: 15 MG, QD
     Route: 048
     Dates: start: 20150308, end: 20150817
  286. BENZYDAMINE HYDROCHLORIDE [Concomitant]
     Active Substance: BENZYDAMINE HYDROCHLORIDE
     Dosage: UNK
     Dates: start: 201508
  287. BENZYDAMINE HYDROCHLORIDE [Concomitant]
     Active Substance: BENZYDAMINE HYDROCHLORIDE
     Dosage: 30 MILLIGRAM, BID/ 15 ML, 2X/DAY
     Dates: start: 201508
  288. BENZYDAMINE HYDROCHLORIDE [Concomitant]
     Active Substance: BENZYDAMINE HYDROCHLORIDE
     Dosage: 60 ML, QD (CUMULATIVE DOSE: 120.0 ML)
     Route: 048
     Dates: start: 20150803, end: 20150817
  289. BENZYDAMINE HYDROCHLORIDE [Concomitant]
     Active Substance: BENZYDAMINE HYDROCHLORIDE
     Dosage: 15 MG, QID
     Route: 048
     Dates: start: 201508
  290. BENZYDAMINE HYDROCHLORIDE [Concomitant]
     Active Substance: BENZYDAMINE HYDROCHLORIDE
     Dosage: 15 MG, EVERY 6 HOURS/ QID
     Dates: start: 20150308, end: 20150817
  291. BENZYDAMINE HYDROCHLORIDE [Concomitant]
     Active Substance: BENZYDAMINE HYDROCHLORIDE
     Dosage: 15 MG, QID (CUMULATIVE DOSE: 8757.5 MG)
     Route: 048
     Dates: start: 20150308, end: 20150817
  292. BENZYDAMINE HYDROCHLORIDE [Concomitant]
     Active Substance: BENZYDAMINE HYDROCHLORIDE
     Dosage: 60 ML, QD (CUMULATIVE DOSE: 120.0 ML)
     Dates: start: 20150803, end: 20150817
  293. BENZYDAMINE HYDROCHLORIDE [Concomitant]
     Active Substance: BENZYDAMINE HYDROCHLORIDE
     Dosage: 15 MG, EVERY 6 HOURS/ QID
     Dates: start: 20150308, end: 20150817
  294. BENZYDAMINE HYDROCHLORIDE [Concomitant]
     Active Substance: BENZYDAMINE HYDROCHLORIDE
     Dosage: 15 MG, QD
     Route: 048
     Dates: start: 20150308
  295. BENZYDAMINE HYDROCHLORIDE [Concomitant]
     Active Substance: BENZYDAMINE HYDROCHLORIDE
     Dosage: 15 MG, QID (6 HOUR)
     Route: 048
     Dates: start: 201508
  296. BENZYDAMINE HYDROCHLORIDE [Concomitant]
     Active Substance: BENZYDAMINE HYDROCHLORIDE
     Dosage: 15 MILLIGRAM, QD (CUMULATIVE DOSE: 2189.375 MG)
     Route: 048
     Dates: start: 20150308, end: 20150817
  297. BENZYDAMINE HYDROCHLORIDE [Concomitant]
     Active Substance: BENZYDAMINE HYDROCHLORIDE
     Dosage: 60 ML, QD (CUMULATIVE DOSE: 120.0 ML)
     Dates: start: 20150803, end: 20150817
  298. BENZYDAMINE HYDROCHLORIDE [Concomitant]
     Active Substance: BENZYDAMINE HYDROCHLORIDE
     Dosage: 15 MG, QID
     Route: 048
     Dates: start: 20150308, end: 20150817
  299. BENZYDAMINE HYDROCHLORIDE [Concomitant]
     Active Substance: BENZYDAMINE HYDROCHLORIDE
     Dosage: 15 MG, QID (CUMULATIVE DOSE: 8757.5 MG)
     Route: 048
     Dates: start: 20150308, end: 20150817
  300. BENZYDAMINE HYDROCHLORIDE [Concomitant]
     Active Substance: BENZYDAMINE HYDROCHLORIDE
     Dosage: UNK
     Route: 048
     Dates: start: 201508
  301. BENZYDAMINE HYDROCHLORIDE [Concomitant]
     Active Substance: BENZYDAMINE HYDROCHLORIDE
     Dosage: 60 ML, QD
     Route: 048
     Dates: start: 20150803, end: 20150817
  302. BENZYDAMINE HYDROCHLORIDE [Concomitant]
     Active Substance: BENZYDAMINE HYDROCHLORIDE
     Dosage: 15 MG, QID
     Route: 048
     Dates: start: 201508
  303. BENZYDAMINE HYDROCHLORIDE [Concomitant]
     Active Substance: BENZYDAMINE HYDROCHLORIDE
     Dosage: 15 MG, QID
     Route: 048
     Dates: start: 201508
  304. BENZYDAMINE HYDROCHLORIDE [Concomitant]
     Active Substance: BENZYDAMINE HYDROCHLORIDE
     Dosage: 60 ML, QD (CUMULATIVE DOSE: 64740.0 ML)
     Route: 048
     Dates: start: 20150803, end: 20150817
  305. BENZYDAMINE HYDROCHLORIDE [Concomitant]
     Active Substance: BENZYDAMINE HYDROCHLORIDE
     Dosage: 15 ML, 2X/DAY
     Route: 048
  306. BENZYDAMINE HYDROCHLORIDE [Concomitant]
     Active Substance: BENZYDAMINE HYDROCHLORIDE
     Dosage: 60 ML, 1X/DAY (CUMULATVE DOSE:900ML)
     Route: 048
     Dates: start: 20150803, end: 20150817
  307. BENZYDAMINE HYDROCHLORIDE [Concomitant]
     Active Substance: BENZYDAMINE HYDROCHLORIDE
     Dosage: 15 ML, 2X/DAY (CUMULATIVE DOSE: 900ML)
     Route: 048
     Dates: start: 20150308
  308. BENZYDAMINE HYDROCHLORIDE [Concomitant]
     Active Substance: BENZYDAMINE HYDROCHLORIDE
     Dosage: 60 ML, EVERY 1 DAY; 60 ML, 1X/DAY; CUMULATIVE DOSE TO FIRST REACTION: 900 ML
     Dates: start: 20150803, end: 20150817
  309. BENZYDAMINE HYDROCHLORIDE [Concomitant]
     Active Substance: BENZYDAMINE HYDROCHLORIDE
     Dosage: 15 MG, QID
     Route: 048
     Dates: start: 20150308, end: 20150817
  310. BENZYDAMINE HYDROCHLORIDE [Concomitant]
     Active Substance: BENZYDAMINE HYDROCHLORIDE
     Dosage: 30 ML, EVERY 1 DAY; 15 ML, 2X/DAY; CUMULATIVE DOSE TO FIRST REACTION: 900 ML
     Route: 048
     Dates: start: 20150308
  311. BENZYDAMINE HYDROCHLORIDE [Concomitant]
     Active Substance: BENZYDAMINE HYDROCHLORIDE
     Dosage: UNK; CUMULATIVE DOSE TO FIRST REACTION: 900 ML
     Route: 048
     Dates: start: 201508
  312. BENZYDAMINE HYDROCHLORIDE [Concomitant]
     Active Substance: BENZYDAMINE HYDROCHLORIDE
     Dosage: 60 ML, EVERY 1 DAY; 60 ML, 1X/DAY; CUMULATIVE DOSE TO FIRST REACTION: 900 ML
     Route: 048
     Dates: start: 20150803, end: 20150817
  313. BENZYDAMINE HYDROCHLORIDE [Concomitant]
     Active Substance: BENZYDAMINE HYDROCHLORIDE
     Dosage: 15 ML, 2X/DAY
     Route: 048
     Dates: start: 20150308
  314. BENZYDAMINE HYDROCHLORIDE [Concomitant]
     Active Substance: BENZYDAMINE HYDROCHLORIDE
     Dosage: 60 ML, QD
     Route: 048
     Dates: start: 20150803, end: 20150817
  315. BENZYDAMINE HYDROCHLORIDE [Concomitant]
     Active Substance: BENZYDAMINE HYDROCHLORIDE
     Dosage: 60 ML, QD
     Route: 048
     Dates: start: 20150803, end: 20150817
  316. BENZYDAMINE HYDROCHLORIDE [Concomitant]
     Active Substance: BENZYDAMINE HYDROCHLORIDE
     Dosage: 15 MG, QID
     Route: 048
     Dates: start: 201508
  317. BENZYDAMINE HYDROCHLORIDE [Concomitant]
     Active Substance: BENZYDAMINE HYDROCHLORIDE
     Dosage: 60 ML, EVERY 1 DAY; 60 ML, 1X/DAY; CUMULATIVE DOSE TO FIRST REACTION: 900 ML
     Dates: start: 20150803, end: 20150817
  318. BENZYDAMINE HYDROCHLORIDE [Concomitant]
     Active Substance: BENZYDAMINE HYDROCHLORIDE
     Dosage: 60 ML, EVERY 1 DAY; 60 ML, 1X/DAY; CUMULATIVE DOSE TO FIRST REACTION: 900 ML
     Dates: start: 20150803, end: 20150817
  319. BISOPROLOL [Concomitant]
     Active Substance: BISOPROLOL
     Dosage: 1000 MG, QD
     Dates: start: 20160908
  320. CALCIUM [Concomitant]
     Active Substance: CALCIUM
     Dosage: UNK
  321. CALCIUM [Concomitant]
     Active Substance: CALCIUM
     Dosage: UNK
  322. CIPROFLOXACIN [Concomitant]
     Active Substance: CIPROFLOXACIN
     Indication: Vascular device infection
     Dosage: 1000 MG, QD (EVERY DAY)
     Dates: start: 20160908
  323. CIPROFLOXACIN [Concomitant]
     Active Substance: CIPROFLOXACIN
     Dosage: 1000 MILLIGRAM, QD (CUMULATIVE DOSE: 404000.0 MG), 500 MILLIGRAM, BID
     Route: 048
     Dates: start: 20160908
  324. CIPROFLOXACIN [Concomitant]
     Active Substance: CIPROFLOXACIN
     Dosage: 1000, 1 DAY
     Dates: start: 20160908
  325. CIPROFLOXACIN [Concomitant]
     Active Substance: CIPROFLOXACIN
     Dosage: 1000 MG, DAILY (CUMULATIVE DOSE: 131041.664 MG)
     Route: 048
     Dates: start: 20151210, end: 20151215
  326. CIPROFLOXACIN [Concomitant]
     Active Substance: CIPROFLOXACIN
     Dosage: 500MILLIGRAM, BID
     Route: 048
     Dates: start: 20151210, end: 20151215
  327. CIPROFLOXACIN [Concomitant]
     Active Substance: CIPROFLOXACIN
     Dosage: 1000 MG, 1X/DAY (CUMULATIVE DOSE: 343000.0 MG)
     Route: 048
     Dates: start: 20151210, end: 20151215
  328. CIPROFLOXACIN [Concomitant]
     Active Substance: CIPROFLOXACIN
     Dosage: 500 MILLIGRAM, BID
     Route: 048
     Dates: start: 20160908
  329. CIPROFLOXACIN [Concomitant]
     Active Substance: CIPROFLOXACIN
     Dosage: 8 MILLIGRAM
     Dates: start: 20150803
  330. CIPROFLOXACIN [Concomitant]
     Active Substance: CIPROFLOXACIN
     Dosage: UNK
  331. AMOXICILLIN\CLAVULANATE POTASSIUM [Concomitant]
     Active Substance: AMOXICILLIN\CLAVULANATE POTASSIUM
     Indication: Vascular device infection
     Dosage: 120 MG
     Route: 058
     Dates: start: 20160127
  332. AMOXICILLIN\CLAVULANATE POTASSIUM [Concomitant]
     Active Substance: AMOXICILLIN\CLAVULANATE POTASSIUM
     Dosage: 625 MG, TID, ORAL USE
     Route: 048
     Dates: start: 20160915
  333. AMOXICILLIN\CLAVULANATE POTASSIUM [Concomitant]
     Active Substance: AMOXICILLIN\CLAVULANATE POTASSIUM
     Dosage: 625 MG, TID
     Route: 048
     Dates: start: 20160915
  334. AMOXICILLIN\CLAVULANATE POTASSIUM [Concomitant]
     Active Substance: AMOXICILLIN\CLAVULANATE POTASSIUM
     Dosage: 1875 MG, DAILY (CUMULATIVE DOSE: 1168046.9 MG)
     Route: 048
     Dates: start: 20160915
  335. AMOXICILLIN\CLAVULANATE POTASSIUM [Concomitant]
     Active Substance: AMOXICILLIN\CLAVULANATE POTASSIUM
     Dosage: 1875 MG, DAILY (CUMULATIVE DOSE: 770625.0 MG)
     Route: 048
     Dates: start: 20160915
  336. DENOSUMAB [Concomitant]
     Active Substance: DENOSUMAB
     Dosage: 120 MG, MONTHLY (XGEVA)
     Route: 058
     Dates: start: 20160127, end: 201802
  337. DENOSUMAB [Concomitant]
     Active Substance: DENOSUMAB
     Dosage: 120 MG, MONTHLY (XGEVA)
     Route: 058
     Dates: start: 20160127, end: 201802
  338. DENOSUMAB [Concomitant]
     Active Substance: DENOSUMAB
     Dosage: 3 DAYS EVERY 3 WEEKS
     Route: 058
     Dates: start: 20150803
  339. DENOSUMAB [Concomitant]
     Active Substance: DENOSUMAB
     Dosage: 8 MG, 3 DAYS EVERY 3 WEEKS
     Route: 058
     Dates: start: 20150803
  340. DENOSUMAB [Concomitant]
     Active Substance: DENOSUMAB
     Dosage: 3 DAYS 2 WEEKS (XVEGA) DOSE: 1
     Route: 058
     Dates: start: 20150803
  341. DEXAMETHASONE [Concomitant]
     Active Substance: DEXAMETHASONE
     Dosage: 8 MG,3 PER WEEKS; FOR 3 DAYS EVERY 3 WEEKS; TABLET (UNCOATED, ORAL); CUMULATIVE DOSE TO FIRST REACTI
     Route: 048
     Dates: start: 20150803
  342. DEXAMETHASONE [Concomitant]
     Active Substance: DEXAMETHASONE
     Dosage: UNK TABLET (UNCOATED, ORAL)
     Route: 048
     Dates: start: 20150803
  343. DEXAMETHASONE [Concomitant]
     Active Substance: DEXAMETHASONE
     Dosage: 8 MG, EVERY 3 WEEKS; FOR 3 DAYS EVERY 3 WEEKS; TABLET (UNCOATED, ORAL); CUMULATIVE DOSE TO FIRST REA
     Route: 048
     Dates: start: 20150803
  344. GENTAMICIN [Concomitant]
     Active Substance: GENTAMICIN
     Indication: Device related infection
     Dosage: UNK
     Route: 065
     Dates: start: 20151130, end: 20151209
  345. IBANDRONIC ACID [Concomitant]
     Active Substance: IBANDRONIC ACID
     Indication: Metastases to bone
     Dosage: 50 MG, DAILY (CUMULATIVE DOSE: 3750.0 MG)
     Route: 048
     Dates: start: 20150518
  346. IRON [Concomitant]
     Active Substance: IRON
     Indication: Serum ferritin decreased
     Dosage: 3 G, QD, TABLET (UNCOATED, ORAL) CUMULATIVE DOSE TO FIRST REACTION: 1877.875 G
     Dates: start: 20160918
  347. IRON [Concomitant]
     Active Substance: IRON
     Dosage: TABLET (UNCOATED, ORAL)
     Route: 048
  348. IRON [Concomitant]
     Active Substance: IRON
     Dosage: 3 G, QD, TABLET (UNCOATED, ORAL) CUMULATIVE DOSE TO FIRST REACTION: 1877.875 G
     Dates: start: 20160918
  349. IRON [Concomitant]
     Active Substance: IRON
     Dosage: 3 G, QD; CUMULATIVE DOSE TO FIRST REACTION: 1242.0 G
     Dates: start: 20160918
  350. IRON [Concomitant]
     Active Substance: IRON
     Dosage: UNK
     Route: 048
  351. IRON [Concomitant]
     Active Substance: IRON
     Dosage: UNK
  352. IRON [Concomitant]
     Active Substance: IRON
     Dosage: 3 G, QD
     Route: 042
     Dates: start: 20160918
  353. IRON [Concomitant]
     Active Substance: IRON
     Dosage: 3 G, QD, INTRAVENOUS USE
     Route: 042
     Dates: start: 20160918
  354. IRON [Concomitant]
     Active Substance: IRON
     Dosage: UNK TABLET (UNCOATED, ORAL)
  355. IRON [Concomitant]
     Active Substance: IRON
     Dosage: UNK
  356. MEROPENEM [Concomitant]
     Active Substance: MEROPENEM
     Indication: Device related infection
     Dosage: 2000 MILLIGRAM, EVERY 1 DAY
     Dates: start: 20141211, end: 20141224
  357. MEROPENEM [Concomitant]
     Active Substance: MEROPENEM
     Dosage: 3 G, 1X/DAY (CUMULATIVE DOSE: 1242.0 G)
     Route: 042
     Dates: start: 20160918
  358. MEROPENEM [Concomitant]
     Active Substance: MEROPENEM
     Dosage: UNK
  359. MEROPENEM [Concomitant]
     Active Substance: MEROPENEM
     Dosage: 1 G, TID
     Route: 042
     Dates: start: 20160918
  360. MEROPENEM [Concomitant]
     Active Substance: MEROPENEM
     Dosage: 3 G, 1X/DAY, INTRAVENOUS
     Route: 042
     Dates: start: 20160918
  361. ACETAMINOPHEN [Concomitant]
     Active Substance: ACETAMINOPHEN
     Indication: Device related infection
     Dosage: 500 MILLIGRAM, QID; CUMULATIVE DOSE TO FIRST REACTION: 28000 MG
     Route: 048
     Dates: start: 20141211, end: 20141224
  362. ACETAMINOPHEN [Concomitant]
     Active Substance: ACETAMINOPHEN
     Dosage: 1 GRAM, QID
     Route: 048
  363. ACETAMINOPHEN [Concomitant]
     Active Substance: ACETAMINOPHEN
     Dosage: 1 GRAM, QID
     Route: 048
  364. ACETAMINOPHEN [Concomitant]
     Active Substance: ACETAMINOPHEN
     Dosage: 2800 MILLIGRAM
  365. ACETAMINOPHEN [Concomitant]
     Active Substance: ACETAMINOPHEN
     Dosage: 4 G, 1X/DAY (EVERY DAY)(CUMULATIVE DOSE: 2495.8333 G)
     Route: 048
     Dates: start: 20160916
  366. ACETAMINOPHEN [Concomitant]
     Active Substance: ACETAMINOPHEN
     Dosage: 2000 MG, QD (CUMULATIVE DOSE:42000.0 MG), 500 MILLIGRAM, QID
     Route: 048
     Dates: start: 20141211, end: 20141224
  367. ACETAMINOPHEN [Concomitant]
     Active Substance: ACETAMINOPHEN
     Dosage: 1 GRAM, QID
     Route: 048
  368. ACETAMINOPHEN [Concomitant]
     Active Substance: ACETAMINOPHEN
     Dosage: 4 G, 1X/DAY (EVERY DAY)(CUMULATIVE DOSE: 28000MG)
     Route: 048
     Dates: start: 20160916
  369. ACETAMINOPHEN [Concomitant]
     Active Substance: ACETAMINOPHEN
     Dosage: 4 G, 1X/DAY (CUMULATIVE DOSE: 1648.0 G)
     Route: 048
     Dates: start: 20160916
  370. ACETAMINOPHEN [Concomitant]
     Active Substance: ACETAMINOPHEN
     Dosage: 2000 MG, QD (CUMULATIVE DOSE: 465916.66 MG)
     Route: 048
     Dates: start: 20141211, end: 20141224
  371. ACETAMINOPHEN [Concomitant]
     Active Substance: ACETAMINOPHEN
     Dosage: 1 GRAM, QID (8 HOUR)
     Route: 048
     Dates: start: 20160916
  372. ACETAMINOPHEN [Concomitant]
     Active Substance: ACETAMINOPHEN
     Dosage: 500 MG, QID (1 DAY)
     Route: 048
     Dates: start: 20141211, end: 20141224
  373. ACETAMINOPHEN [Concomitant]
     Active Substance: ACETAMINOPHEN
     Dosage: UNK
  374. RAMIPRIL [Concomitant]
     Active Substance: RAMIPRIL
     Indication: Ejection fraction decreased
     Dosage: 10 MILLIGRAM
     Route: 048
     Dates: start: 201603
  375. PIPERACILLIN SODIUM\TAZOBACTAM SODIUM [Concomitant]
     Active Substance: PIPERACILLIN SODIUM\TAZOBACTAM SODIUM
     Indication: Device related infection
     Dosage: 600 MILLIGRAM EVERY 3 WEEKS
     Route: 042
     Dates: start: 20160723
  376. PIPERACILLIN SODIUM\TAZOBACTAM SODIUM [Concomitant]
     Active Substance: PIPERACILLIN SODIUM\TAZOBACTAM SODIUM
     Dosage: 600 MG, QD
     Route: 042
     Dates: start: 20160723
  377. PIPERACILLIN SODIUM\TAZOBACTAM SODIUM [Concomitant]
     Active Substance: PIPERACILLIN SODIUM\TAZOBACTAM SODIUM
     Dosage: UNK
  378. PIPERACILLIN SODIUM\TAZOBACTAM SODIUM [Concomitant]
     Active Substance: PIPERACILLIN SODIUM\TAZOBACTAM SODIUM
     Dosage: 600 MILLIGRAM EVERY 3 WEEKS (CUMULATIVE DOSE 16255.952 MG)
     Route: 058
     Dates: start: 20160723
  379. PIPERACILLIN SODIUM\TAZOBACTAM SODIUM [Concomitant]
     Active Substance: PIPERACILLIN SODIUM\TAZOBACTAM SODIUM
     Dosage: UNK
     Route: 058
     Dates: start: 20151130, end: 20151209
  380. PIPERACILLIN SODIUM\TAZOBACTAM SODIUM [Concomitant]
     Active Substance: PIPERACILLIN SODIUM\TAZOBACTAM SODIUM
     Dosage: 600 MILLIGRAM EVERY 3 WEEKS
     Route: 042
     Dates: start: 20160723
  381. PIPERACILLIN SODIUM\TAZOBACTAM SODIUM [Concomitant]
     Active Substance: PIPERACILLIN SODIUM\TAZOBACTAM SODIUM
     Dosage: 600 MG EVERY 3 WEEKS;UNK
     Route: 058
     Dates: start: 20151130, end: 20151209
  382. PIPERACILLIN SODIUM\TAZOBACTAM SODIUM [Concomitant]
     Active Substance: PIPERACILLIN SODIUM\TAZOBACTAM SODIUM
     Dosage: 600 MILLIGRAM EVERY 3 WEEKS (CUMULATIVE DOSE 16255.952 MG)
     Route: 058
     Dates: start: 20160723
  383. PIPERACILLIN SODIUM\TAZOBACTAM SODIUM [Concomitant]
     Active Substance: PIPERACILLIN SODIUM\TAZOBACTAM SODIUM
     Dosage: 600 MILLIGRAM EVERY 3 WEEKS
     Route: 042
     Dates: start: 20160723
  384. PIPERACILLIN SODIUM\TAZOBACTAM SODIUM [Concomitant]
     Active Substance: PIPERACILLIN SODIUM\TAZOBACTAM SODIUM
     Dosage: UNK
     Route: 058
     Dates: start: 20151130, end: 20151209
  385. PIPERACILLIN SODIUM\TAZOBACTAM SODIUM [Concomitant]
     Active Substance: PIPERACILLIN SODIUM\TAZOBACTAM SODIUM
     Dosage: 600 MG, EVERY 3 WEEKS (CUMULATIVE DOSE: 10200.0 MG)
     Route: 058
     Dates: start: 20160723
  386. PIPERACILLIN SODIUM\TAZOBACTAM SODIUM [Concomitant]
     Active Substance: PIPERACILLIN SODIUM\TAZOBACTAM SODIUM
     Dosage: UNK
  387. XGEVA [Concomitant]
     Active Substance: DENOSUMAB
     Dosage: UNK UNK, Q3WK
     Route: 058
     Dates: start: 20150803
  388. XGEVA [Concomitant]
     Active Substance: DENOSUMAB
     Dosage: 120 MG, 1/MONTH (CUMULATIVE DOSE: 1564.0 MG)
     Route: 058
     Dates: start: 20160127, end: 201802
  389. XGEVA [Concomitant]
     Active Substance: DENOSUMAB
     Dosage: 120 MG, 1/MONTH (CUMULATIVE DOSE: 716.1667 MG)
     Route: 058
     Dates: start: 20160127, end: 201802
  390. XGEVA [Concomitant]
     Active Substance: DENOSUMAB
     Dosage: 24 MILLIGRAM EVERY 3 DAYS (CUMULATIVE DOSE: 16.0 MG)
     Route: 058
     Dates: start: 20150803
  391. XGEVA [Concomitant]
     Active Substance: DENOSUMAB
     Dosage: 1 EVERY 3 WEEKS; 3 DAYS 2 WEEKS
     Dates: start: 20150803

REACTIONS (36)
  - Device related infection [Recovered/Resolved]
  - Device related infection [Recovered/Resolved]
  - Device related infection [Recovered/Resolved]
  - Vascular device infection [Recovered/Resolved]
  - Vascular device infection [Recovered/Resolved]
  - Vascular device infection [Recovered/Resolved]
  - Sepsis [Recovered/Resolved]
  - Osteonecrosis of jaw [Not Recovered/Not Resolved]
  - Ejection fraction decreased [Recovered/Resolved]
  - Ejection fraction decreased [Recovered/Resolved]
  - Ejection fraction decreased [Recovered/Resolved]
  - Ejection fraction decreased [Recovered/Resolved]
  - Ejection fraction decreased [Recovered/Resolved]
  - Ejection fraction decreased [Recovered/Resolved]
  - Ejection fraction decreased [Recovered/Resolved]
  - Mucosal inflammation [Recovered/Resolved]
  - Mucosal inflammation [Recovered/Resolved]
  - Gastrooesophageal reflux disease [Recovered/Resolved]
  - Gastrooesophageal reflux disease [Recovered/Resolved]
  - Gingival swelling [Recovered/Resolved]
  - Diarrhoea [Recovered/Resolved]
  - Lymphoedema [Recovered/Resolved]
  - Lymphoedema [Recovered/Resolved]
  - Gingival swelling [Recovered/Resolved]
  - Anaemia [Recovered/Resolved]
  - Anaemia [Recovered/Resolved]
  - Alopecia [Recovered/Resolved]
  - Epistaxis [Recovered/Resolved]
  - Epistaxis [Recovered/Resolved]
  - Fatigue [Recovered/Resolved]
  - Fatigue [Recovered/Resolved]
  - Hot flush [Unknown]
  - Rash [Recovered/Resolved]
  - Influenza like illness [Recovered/Resolved]
  - Off label use [Unknown]
  - Off label use [Unknown]

NARRATIVE: CASE EVENT DATE: 20150801
